FAERS Safety Report 9304461 (Version 2)
Quarter: 2013Q2

REPORT INFORMATION
  Report Type: Spontaneous
  Country: US (occurrence: US)
  Receive Date: 20130523
  Receipt Date: 20130617
  Transmission Date: 20140414
  Serious: No
  Sender: FDA-Public Use
  Company Number: US-009507513-1305USA009523

PATIENT
  Sex: Female

DRUGS (2)
  1. SINGULAIR [Suspect]
     Indication: ASTHMA
     Dosage: ONE TABLET DAILY IN THE EVENING
     Route: 048
     Dates: start: 201205
  2. ADVAIR [Concomitant]

REACTIONS (2)
  - Insomnia [Not Recovered/Not Resolved]
  - Dysphonia [Unknown]
